FAERS Safety Report 16298419 (Version 2)
Quarter: 2019Q2

REPORT INFORMATION
  Report Type: Spontaneous
  Country: US (occurrence: US)
  Receive Date: 20190510
  Receipt Date: 20190611
  Transmission Date: 20190711
  Serious: Yes (Other)
  Sender: FDA-Public Use
  Company Number: US-JNJFOC-20190505165

PATIENT
  Age: 75 Year
  Sex: Male
  Weight: 73.48 kg

DRUGS (6)
  1. BUMETANIDE. [Concomitant]
     Active Substance: BUMETANIDE
     Indication: DIURETIC THERAPY
     Route: 065
     Dates: start: 201404
  2. XARELTO [Suspect]
     Active Substance: RIVAROXABAN
     Indication: THROMBOSIS
     Route: 048
     Dates: start: 20140420
  3. POTASSIUM CHLORIDE. [Concomitant]
     Active Substance: POTASSIUM CHLORIDE
     Indication: DIURETIC THERAPY
     Route: 065
     Dates: start: 201404
  4. FINASTERIDE. [Concomitant]
     Active Substance: FINASTERIDE
     Route: 065
     Dates: start: 201805
  5. REPATHA [Concomitant]
     Active Substance: EVOLOCUMAB
     Indication: BLOOD CHOLESTEROL
     Route: 065
     Dates: start: 201702
  6. COREG [Concomitant]
     Active Substance: CARVEDILOL
     Indication: CARDIAC DISORDER
     Route: 065
     Dates: start: 201404

REACTIONS (4)
  - Thymoma [Not Recovered/Not Resolved]
  - Chromaturia [Recovered/Resolved]
  - Mouth haemorrhage [Not Recovered/Not Resolved]
  - Calculus bladder [Recovered/Resolved]

NARRATIVE: CASE EVENT DATE: 2019
